FAERS Safety Report 14711392 (Version 5)
Quarter: 2018Q2

REPORT INFORMATION
  Report Type: Report from Study
  Country: DK (occurrence: DK)
  Receive Date: 20180403
  Receipt Date: 20180625
  Transmission Date: 20180711
  Serious: Yes (Death, Hospitalization)
  Sender: FDA-Public Use
  Company Number: DK-GILEAD-2018-0330445

PATIENT
  Age: 72 Year
  Sex: Female

DRUGS (4)
  1. SULFAMETHOXAZOLE [Concomitant]
     Active Substance: SULFAMETHOXAZOLE
     Indication: PROPHYLAXIS
     Dosage: UNK
     Dates: start: 20171222
  2. BEHEPAN                            /00056201/ [Concomitant]
     Active Substance: CYANOCOBALAMIN
     Indication: VITAMIN B12 DEFICIENCY
     Dosage: UNK
     Dates: start: 20151204
  3. IDELALISIB [Suspect]
     Active Substance: IDELALISIB
     Indication: DIFFUSE LARGE B-CELL LYMPHOMA
     Dosage: UNK
     Route: 065
     Dates: start: 20171222, end: 20180326
  4. FOLACIN                            /00024201/ [Concomitant]
     Active Substance: FOLIC ACID
     Indication: FOLATE DEFICIENCY
     Dosage: UNK
     Dates: start: 20140915

REACTIONS (1)
  - General physical health deterioration [Fatal]

NARRATIVE: CASE EVENT DATE: 20180326
